FAERS Safety Report 16112007 (Version 1)
Quarter: 2019Q1

REPORT INFORMATION
  Report Type: Report from Study
  Country: US (occurrence: US)
  Receive Date: 20190325
  Receipt Date: 20190325
  Transmission Date: 20190418
  Serious: Yes (Other)
  Sender: FDA-Public Use
  Company Number: US-EMD SERONO-9079714

PATIENT
  Sex: Female

DRUGS (1)
  1. REBIF [Suspect]
     Active Substance: INTERFERON BETA-1A
     Indication: MULTIPLE SCLEROSIS
     Route: 058
     Dates: start: 20101013

REACTIONS (4)
  - Gait disturbance [Recovering/Resolving]
  - Multiple sclerosis [Unknown]
  - Impaired driving ability [Unknown]
  - Renal failure [Recovering/Resolving]
